FAERS Safety Report 8766533 (Version 4)
Quarter: 2019Q1

REPORT INFORMATION
  Report Type: Spontaneous
  Country: IT (occurrence: IT)
  Receive Date: 20120904
  Receipt Date: 20190206
  Transmission Date: 20190418
  Serious: Yes (Death, Other)
  Sender: FDA-Public Use
  Company Number: IT-ASTRAZENECA-2012SE65980

PATIENT
  Age: 30921 Day
  Sex: Male

DRUGS (9)
  1. MIRTAZAPINE. [Interacting]
     Active Substance: MIRTAZAPINE
     Indication: DEPRESSION
     Route: 048
  2. HALCION [Concomitant]
     Active Substance: TRIAZOLAM
     Dosage: 1.0DF UNKNOWN
  3. SEROQUEL [Interacting]
     Active Substance: QUETIAPINE FUMARATE
     Indication: PSYCHOTIC DISORDER
     Route: 048
  4. MITTOVAL [Concomitant]
     Active Substance: ALFUZOSIN HYDROCHLORIDE
  5. MIRTAZAPINE. [Interacting]
     Active Substance: MIRTAZAPINE
     Indication: DEPRESSION
     Route: 048
     Dates: start: 20120101, end: 20120415
  6. SEROQUEL [Suspect]
     Active Substance: QUETIAPINE FUMARATE
     Indication: PSYCHOTIC DISORDER
     Route: 048
     Dates: start: 20060302, end: 20120228
  7. TICLOPIDINE [Concomitant]
     Active Substance: TICLOPIDINE
  8. SEROQUEL [Interacting]
     Active Substance: QUETIAPINE FUMARATE
     Indication: PSYCHOTIC DISORDER
     Route: 048
     Dates: start: 201205
  9. TALOFEN [Suspect]
     Active Substance: PROMAZINE HYDROCHLORIDE
     Indication: SCHIZOPHRENIA
     Route: 048
     Dates: start: 20110101, end: 20120415

REACTIONS (5)
  - Electrocardiogram QT prolonged [Recovered/Resolved]
  - Pneumonia [Fatal]
  - Drug interaction [Recovered/Resolved]
  - Hypotension [Unknown]
  - Anaemia [Unknown]

NARRATIVE: CASE EVENT DATE: 20120228
